FAERS Safety Report 5365077-8 (Version None)
Quarter: 2007Q2

REPORT INFORMATION
  Report Type: 
  Country: None (occurrence: None)
  Receive Date: 20070530
  Receipt Date: 20070219
  Transmission Date: 20071010
  Serious: No
  Sender: FDA-Public Use
  Company Number: 2006PV014173

PATIENT
  Age: 50 Year
  Sex: Female
  Weight: 83.0083 kg

DRUGS (6)
  1. BYETTA [Suspect]
     Indication: DIABETES MELLITUS NON-INSULIN-DEPENDENT
     Dosage: SEE IMAGE
     Route: 058
     Dates: start: 20060503, end: 20060601
  2. BYETTA [Suspect]
     Indication: DIABETES MELLITUS NON-INSULIN-DEPENDENT
     Dosage: SEE IMAGE
     Route: 058
     Dates: start: 20060601
  3. BYETTA [Suspect]
  4. METFORMIN HCL [Concomitant]
  5. GLUCOPHAGE [Concomitant]
  6. STRATTERA [Concomitant]

REACTIONS (9)
  - CONSTIPATION [None]
  - DRUG INEFFECTIVE FOR UNAPPROVED INDICATION [None]
  - EARLY SATIETY [None]
  - ENERGY INCREASED [None]
  - MENSTRUATION DELAYED [None]
  - THERAPEUTIC RESPONSE UNEXPECTED [None]
  - VOMITING [None]
  - WEIGHT DECREASED [None]
  - WEIGHT FLUCTUATION [None]
